FAERS Safety Report 9996428 (Version 2)
Quarter: 2014Q3

REPORT INFORMATION
  Report Type: Spontaneous
  Country: US (occurrence: US)
  Receive Date: 20140311
  Receipt Date: 20140904
  Transmission Date: 20150326
  Serious: Yes (Hospitalization, Disabling)
  Sender: FDA-Public Use
  Company Number: US-BAYER-2014-035497

PATIENT
  Age: 29 Year
  Sex: Female
  Weight: 100.68 kg

DRUGS (8)
  1. BEYAZ [Suspect]
     Active Substance: DROSPIRENONE\ETHINYL ESTRADIOL\LEVOMEFOLATE CALCIUM
     Dosage: UNK
     Dates: start: 2006, end: 2006
  2. METFORMIN [Concomitant]
     Active Substance: METFORMIN HYDROCHLORIDE
     Indication: OVARIAN CYST
     Dosage: 1000 MG, UNK
     Route: 048
     Dates: start: 2012
  3. ONDANSETRON [Concomitant]
     Active Substance: ONDANSETRON
     Dosage: 8 MG, UNK
     Route: 048
     Dates: start: 20120809
  4. HYDROCODONE BIT/APAP [Concomitant]
     Active Substance: ACETAMINOPHEN\HYDROCODONE BITARTRATE
     Dosage: 7.5 MG, UNK
     Route: 048
     Dates: start: 20120809, end: 20120814
  5. YAZ [Suspect]
     Active Substance: DROSPIRENONE\ETHINYL ESTRADIOL
     Dosage: UNK
     Dates: start: 2006, end: 201208
  6. GIANVI [Suspect]
     Active Substance: DROSPIRENONE\ETHINYL ESTRADIOL
     Dosage: UNK
     Dates: start: 2006, end: 2006
  7. DEXILANT [Concomitant]
     Active Substance: DEXLANSOPRAZOLE
     Dosage: 60 MG, UNK
     Route: 048
     Dates: start: 20120530, end: 20120716
  8. METRONIDAZOLE. [Concomitant]
     Active Substance: METRONIDAZOLE
     Dosage: 0.75 %, UNK
     Route: 048
     Dates: start: 20120810

REACTIONS (7)
  - Pain [None]
  - Injury [None]
  - General physical health deterioration [None]
  - Abdominal pain [None]
  - Pain in extremity [None]
  - Deep vein thrombosis [None]
  - Peripheral swelling [None]

NARRATIVE: CASE EVENT DATE: 201208
